FAERS Safety Report 18403055 (Version 1)
Quarter: 2020Q4

REPORT INFORMATION
  Report Type: Spontaneous
  Country: DE (occurrence: DE)
  Receive Date: 20201019
  Receipt Date: 20201019
  Transmission Date: 20210114
  Serious: Yes (Hospitalization, Other)
  Sender: FDA-Public Use
  Company Number: DE-009507513-2009DEU003639

PATIENT
  Sex: Female
  Weight: 105 kg

DRUGS (8)
  1. KEYTRUDA [Suspect]
     Active Substance: PEMBROLIZUMAB
     Indication: LUNG ADENOCARCINOMA
     Dosage: 200 MILLIGRAM ABSOLUTE
     Route: 042
     Dates: start: 20200323, end: 202007
  2. FORTECORTIN [Concomitant]
     Active Substance: DEXAMETHASONE
     Indication: EXPOSURE TO RADIATION
     Dosage: 3X4 MG
     Dates: start: 202004
  3. CLEXANE (ENOXAPARIN SODIUM) [Concomitant]
     Active Substance: ENOXAPARIN SODIUM
     Dosage: 0.6 MILLILITER, BID
     Route: 058
     Dates: start: 2020
  4. RAMIPRIL. [Concomitant]
     Active Substance: RAMIPRIL
     Dosage: 5 MILLIGRAM, QD
  5. BISOPROLOL [Concomitant]
     Active Substance: BISOPROLOL
     Dosage: 2.5 MILLIGRAM, QD
  6. LIXIANA [Concomitant]
     Active Substance: EDOXABAN TOSYLATE
     Dosage: 60 MILLIGRAM
     Dates: end: 2020
  7. CARBIMAZOLE [Concomitant]
     Active Substance: CARBIMAZOLE
     Dosage: 2.5 MILLIGRAM, QD
  8. PANTOPRAZOLE [Concomitant]
     Active Substance: PANTOPRAZOLE
     Dosage: 40 MILLIGRAM, QD

REACTIONS (7)
  - Transaminases increased [Unknown]
  - Immune-mediated hepatitis [Unknown]
  - Diabetes mellitus inadequate control [Recovering/Resolving]
  - Staphylococcal infection [Not Recovered/Not Resolved]
  - Steatohepatitis [Unknown]
  - Malaise [Unknown]
  - Fatigue [Unknown]

NARRATIVE: CASE EVENT DATE: 2020
